FAERS Safety Report 6445727-5 (Version None)
Quarter: 2009Q4

REPORT INFORMATION
  Report Type: 
  Country: None (occurrence: None)
  Receive Date: 20091118
  Receipt Date: 20091118
  Transmission Date: 20100525
  Serious: Yes (Other)
  Sender: FDA-Public Use
  Company Number: None

PATIENT
  Age: 39 Year
  Sex: Male
  Weight: 77.1115 kg

DRUGS (2)
  1. DOXYCYCLINE [Suspect]
     Indication: POST PROCEDURAL INFECTION
     Dosage: 100 MG  2/DAY PO
     Route: 048
     Dates: start: 20091101, end: 20091112
  2. DOXYCYCLINE [Suspect]
     Indication: STAPHYLOCOCCAL INFECTION
     Dosage: 100 MG  2/DAY PO
     Route: 048
     Dates: start: 20091101, end: 20091112

REACTIONS (4)
  - AFFECTIVE DISORDER [None]
  - ANXIETY [None]
  - DEPRESSION [None]
  - MYALGIA [None]
